FAERS Safety Report 7589952-9 (Version None)
Quarter: 2011Q3

REPORT INFORMATION
  Report Type: 
  Country: None (occurrence: None)
  Receive Date: 20110705
  Receipt Date: 20110614
  Transmission Date: 20111222
  Serious: Yes (Hospitalization)
  Sender: FDA-Public Use
  Company Number: A0805974A

PATIENT
  Age: 58 Year
  Sex: Female

DRUGS (13)
  1. AGGRENOX [Concomitant]
  2. FUROSEMIDE [Concomitant]
  3. INDERAL [Concomitant]
  4. AVANDIA [Suspect]
     Route: 048
  5. TOPROL-XL [Concomitant]
  6. SYNTHROID [Concomitant]
  7. ASPIRIN [Concomitant]
  8. CELEBREX [Concomitant]
  9. DIPYRIDAMOLE [Concomitant]
  10. PRAVACHOL [Concomitant]
  11. DYAZIDE [Concomitant]
  12. COVERA-HS [Concomitant]
  13. INSULIN [Concomitant]

REACTIONS (2)
  - CEREBROVASCULAR ACCIDENT [None]
  - DEEP VEIN THROMBOSIS [None]
